FAERS Safety Report 21156658 (Version 1)
Quarter: 2022Q3

REPORT INFORMATION
  Report Type: Spontaneous
  Country: US (occurrence: None)
  Receive Date: 20220801
  Receipt Date: 20220801
  Transmission Date: 20221026
  Serious: Yes (Hospitalization)
  Sender: FDA-Public Use
  Company Number: None

PATIENT
  Sex: Male

DRUGS (13)
  1. MYCOPHENOLIC ACID [Suspect]
     Active Substance: MYCOPHENOLIC ACID
     Indication: Renal transplant
     Dosage: TAKE 3 TABLETS BY MOUTH TWICE DAILY?
     Route: 048
     Dates: start: 20170609
  2. ALLERGY RELF TAB [Concomitant]
  3. ATORVASTATIN [Concomitant]
     Active Substance: ATORVASTATIN
  4. DAPSONE TAB [Concomitant]
  5. ELIQUIS [Concomitant]
     Active Substance: APIXABAN
  6. FLONASE ALGY SPR [Concomitant]
  7. GLUCOSAMINE POW ACETYL-D [Concomitant]
  8. LEVOTHYROXINE [Concomitant]
     Active Substance: LEVOTHYROXINE
  9. MAGNESIUM TAB [Concomitant]
  10. METOPROLOL SUC TAB [Concomitant]
  11. PREDNISONE [Concomitant]
     Active Substance: PREDNISONE
  12. TACROLIMUS [Concomitant]
     Active Substance: TACROLIMUS
  13. TYLENOL TAB [Concomitant]

REACTIONS (2)
  - Infection [None]
  - Therapy interrupted [None]

NARRATIVE: CASE EVENT DATE: 20220701
